FAERS Safety Report 6309558-9 (Version None)
Quarter: 2009Q3

REPORT INFORMATION
  Report Type: 
  Country: None (occurrence: None)
  Receive Date: 20090814
  Receipt Date: 20090813
  Transmission Date: 20100115
  Serious: Yes (Death)
  Sender: FDA-Public Use
  Company Number: US-ASTRAZENECA-2009UW15197

PATIENT
  Age: 88 Year
  Sex: Male
  Weight: 64.4 kg

DRUGS (4)
  1. SEROQUEL [Suspect]
     Indication: HALLUCINATION
     Dosage: 25-150 MG
     Route: 048
     Dates: start: 20090101
  2. ATIVAN [Concomitant]
  3. EXELON [Concomitant]
  4. NAMENDA [Concomitant]

REACTIONS (5)
  - DEATH [None]
  - HYPERSOMNIA [None]
  - HYPOPHAGIA [None]
  - MUSCLE RIGIDITY [None]
  - SOMNOLENCE [None]
